FAERS Safety Report 7001279-2 (Version None)
Quarter: 2010Q3

REPORT INFORMATION
  Report Type: 
  Country: None (occurrence: None)
  Receive Date: 20100920
  Receipt Date: 20100511
  Transmission Date: 20110219
  Serious: Yes (Other)
  Sender: FDA-Public Use
  Company Number: US-ASTRAZENECA-2009UW21025

PATIENT
  Age: 37 Year
  Sex: Male
  Weight: 116.1 kg

DRUGS (7)
  1. SEROQUEL [Suspect]
     Indication: SCHIZOPHRENIA
     Dosage: 200MG-600MG AT NIGHT
     Route: 048
     Dates: start: 19990101, end: 20080101
  2. ZYPREXA [Concomitant]
  3. SYMBYAX [Concomitant]
  4. REMERON [Concomitant]
     Route: 048
     Dates: start: 20021119
  5. CLONAZEPAM [Concomitant]
     Route: 048
     Dates: start: 20021119
  6. AMBIEN [Concomitant]
     Route: 048
     Dates: start: 20021119
  7. RISPERDAL [Concomitant]
     Route: 048
     Dates: start: 20021203

REACTIONS (4)
  - ERECTILE DYSFUNCTION [None]
  - HYPERGLYCAEMIA [None]
  - PANCREATITIS ACUTE [None]
  - TYPE 2 DIABETES MELLITUS [None]
